FAERS Safety Report 8360856-7 (Version None)
Quarter: 2012Q2

REPORT INFORMATION
  Report Type: 
  Country: None (occurrence: None)
  Receive Date: 20120515
  Receipt Date: 20120501
  Transmission Date: 20120825
  Serious: Yes (Other)
  Sender: FDA-Public Use
  Company Number: AR-AMGEN-ARGSP2012006940

PATIENT
  Age: 65 Year
  Sex: Female

DRUGS (6)
  1. METHOTREXATE [Concomitant]
     Dosage: UNK
  2. DELTASONE                          /00044701/ [Concomitant]
     Dosage: UNK
  3. VITAMIN D [Concomitant]
     Dosage: UNK
  4. POLYGAM S/D [Concomitant]
     Dosage: UNK
  5. FOLIC ACID [Concomitant]
     Dosage: UNK
  6. ENBREL [Suspect]
     Indication: RHEUMATOID ARTHRITIS
     Dosage: 50 MG, WEEKLY
     Route: 058
     Dates: start: 20111120, end: 20120101

REACTIONS (5)
  - FALLOPIAN TUBE DISORDER [None]
  - METASTASES TO UTERUS [None]
  - FALLOPIAN TUBE CANCER METASTATIC [None]
  - METASTASES TO PERITONEUM [None]
  - OVARIAN CANCER [None]
